FAERS Safety Report 8722623 (Version 2)
Quarter: 2012Q4

REPORT INFORMATION
  Report Type: 
  Country: US (occurrence: US)
  Receive Date: 20120814
  Receipt Date: 20121026
  Transmission Date: 20130627
  Serious: Yes (Other)
  Sender: FDA-Public Use
  Company Number: US-BAYER-2012-081449

PATIENT
  Age: 57 Year
  Sex: Female
  Weight: 52.15 kg

DRUGS (13)
  1. BETASERON [Suspect]
     Indication: MS
     Dosage: 0.25 mg, QOD
     Route: 058
     Dates: start: 201002
  2. BETASERON [Suspect]
     Indication: MS
     Dosage: UNK
     Route: 058
  3. CARISOPRODOL [Concomitant]
     Dosage: 350 mg, QID
  4. BUTALBITAL, ACETAMINOPHEN + CAFFEINE [Concomitant]
     Dosage: UNK UNK, TID
  5. GABAPENTIN [Concomitant]
     Dosage: 300 mg, TID
  6. PANTOPRAZOLE [Concomitant]
     Dosage: 40 mg, QD
  7. NORTRIPTYLINE [Concomitant]
     Dosage: 100 mg, HS
  8. VESICARE [Concomitant]
     Dosage: 5 mg, QD
  9. CLONAZEPAM [Concomitant]
     Dosage: 0.5 mg, PRN
  10. NUCYNTA [Concomitant]
     Dosage: 100 mg, QID
  11. NUVIGIL [Concomitant]
     Dosage: UNK UNK, QD
  12. VAGIFEM [Concomitant]
     Dosage: UNK UNK, BIW
  13. LIDODERM [Concomitant]
     Dosage: 10 %, QD

REACTIONS (1)
  - Multiple sclerosis relapse [Recovered/Resolved]
